FAERS Safety Report 17596890 (Version 2)
Quarter: 2020Q2

REPORT INFORMATION
  Report Type: Spontaneous
  Country: CO (occurrence: CO)
  Receive Date: 20200330
  Receipt Date: 20200401
  Transmission Date: 20200713
  Serious: Yes (Other)
  Sender: FDA-Public Use
  Company Number: CO-SA-2020SA067906

PATIENT
  Age: 3 Year
  Sex: Male

DRUGS (1)
  1. INSULIN GLULISINE [Suspect]
     Active Substance: INSULIN GLULISINE
     Indication: TYPE 1 DIABETES MELLITUS
     Dosage: HALF A DOSE, QD
     Route: 058

REACTIONS (6)
  - Blood glucose fluctuation [Recovered/Resolved]
  - Adverse event [Unknown]
  - Diabetic metabolic decompensation [Not Recovered/Not Resolved]
  - Device breakage [Unknown]
  - Product dose omission [Unknown]
  - Incorrect route of product administration [Unknown]
